FAERS Safety Report 5752492 (Version 7)
Quarter: 2015Q1

REPORT INFORMATION
  Report Type: Spontaneous
  Country: US (occurrence: US)
  Receive Date: 20050307
  Receipt Date: 20150314
  Transmission Date: 20150721
  Serious: Yes (Hospitalization, Disabling)
  Sender: FDA-Public Use
  Company Number: US-ROCHE-396715

PATIENT
  Age: 15 Year
  Sex: Male
  Weight: 56.7 kg

DRUGS (25)
  1. ACCUTANE [Suspect]
     Active Substance: ISOTRETINOIN
     Route: 048
     Dates: start: 19971121, end: 19971217
  2. DYNACIN [Concomitant]
     Active Substance: MINOCYCLINE HYDROCHLORIDE
     Indication: ACNE
     Route: 048
  3. ACCUTANE [Suspect]
     Active Substance: ISOTRETINOIN
     Dosage: TAKEN ON MONDAYS AND THURSDAYS.
     Route: 048
  4. ACCUTANE [Suspect]
     Active Substance: ISOTRETINOIN
     Route: 048
     Dates: start: 19970708, end: 19970712
  5. ACCUTANE [Suspect]
     Active Substance: ISOTRETINOIN
     Dosage: DOSE CHANGED ON UNKNOWN DATE
     Route: 048
  6. ACCUTANE [Suspect]
     Active Substance: ISOTRETINOIN
     Route: 048
     Dates: start: 19981113, end: 19981221
  7. ACCUTANE [Suspect]
     Active Substance: ISOTRETINOIN
     Route: 048
     Dates: start: 19981221, end: 19990304
  8. ACCUTANE [Suspect]
     Active Substance: ISOTRETINOIN
     Dosage: DOSE CHANGED ON UNKNOWN DATE.
     Route: 048
  9. SEPTRA DS [Concomitant]
     Active Substance: SULFAMETHOXAZOLE\TRIMETHOPRIM
     Indication: STAPHYLOCOCCUS TEST POSITIVE
     Route: 048
  10. DESQUAM-E [Concomitant]
     Indication: ACNE
     Dosage: APPLIED TO FACE EVERY NIGHT
     Route: 061
  11. ACCUTANE [Suspect]
     Active Substance: ISOTRETINOIN
     Indication: ACNE
     Route: 048
     Dates: start: 19970120, end: 19970128
  12. ACCUTANE [Suspect]
     Active Substance: ISOTRETINOIN
     Route: 048
     Dates: start: 19970201, end: 19970520
  13. ACCUTANE [Suspect]
     Active Substance: ISOTRETINOIN
     Dosage: MONDAYS AND FRIDAYS TAKES 80MG ONCE DAILY, REST OF WEEK ON 40MG ONCE DAILY.
     Route: 048
     Dates: start: 19971217, end: 19980212
  14. ACCUTANE [Suspect]
     Active Substance: ISOTRETINOIN
     Dosage: STOPPED IN MAY OR JUNE
     Route: 048
     Dates: start: 19980212, end: 1998
  15. CLEOCIN T [Concomitant]
     Active Substance: CLINDAMYCIN PHOSPHATE
     Indication: ACNE
     Dosage: APPLIED TO FACE EVERY NIGHT
     Route: 061
  16. ACCUTANE [Suspect]
     Active Substance: ISOTRETINOIN
     Route: 048
     Dates: start: 19990811, end: 19990921
  17. ACCUTANE [Suspect]
     Active Substance: ISOTRETINOIN
     Route: 048
     Dates: start: 19991026, end: 20000204
  18. ACCUTANE [Suspect]
     Active Substance: ISOTRETINOIN
     Route: 048
     Dates: start: 20000204, end: 200002
  19. ACCUTANE [Suspect]
     Active Substance: ISOTRETINOIN
     Dosage: DOSE CHANGED ON UNKNOWN DATE
     Route: 048
  20. ACCUTANE [Suspect]
     Active Substance: ISOTRETINOIN
     Route: 048
  21. ACCUTANE [Suspect]
     Active Substance: ISOTRETINOIN
     Route: 048
     Dates: start: 19990304, end: 19990515
  22. ACCUTANE [Suspect]
     Active Substance: ISOTRETINOIN
     Route: 048
  23. DIFFERIN [Concomitant]
     Active Substance: ADAPALENE
     Indication: ACNE
     Route: 061
  24. TRIAZ [Concomitant]
     Active Substance: BENZOYL PEROXIDE
     Indication: ACNE
     Route: 061
  25. KLARON [Concomitant]
     Active Substance: SULFACETAMIDE SODIUM
     Indication: ACNE
     Route: 061

REACTIONS (24)
  - Internal injury [Unknown]
  - Back pain [Unknown]
  - Lip dry [Unknown]
  - Dry skin [Unknown]
  - Gastrointestinal disorder [Unknown]
  - Liver disorder [Unknown]
  - Colitis ulcerative [Unknown]
  - Abdominal pain lower [Unknown]
  - Joint stiffness [Unknown]
  - Faeces discoloured [Unknown]
  - Epistaxis [Unknown]
  - Photosensitivity reaction [Unknown]
  - Cholangitis sclerosing [Unknown]
  - Epiphyses premature fusion [Unknown]
  - Abdominal pain [Unknown]
  - Diarrhoea haemorrhagic [Unknown]
  - Inflammatory bowel disease [Unknown]
  - Abdominal discomfort [Unknown]
  - Colitis [Unknown]
  - Diarrhoea [Unknown]
  - Growth retardation [Unknown]
  - Headache [Unknown]
  - Rectal haemorrhage [Unknown]
  - Intestinal haemorrhage [Unknown]

NARRATIVE: CASE EVENT DATE: 19970128
